FAERS Safety Report 7350668 (Version 3)
Quarter: 2012Q4

REPORT INFORMATION
  Report Type: 
  Country: CA (occurrence: CA)
  Receive Date: 20100409
  Receipt Date: 20121001
  Transmission Date: 20130627
  Serious: Yes (Hospitalization)
  Sender: FDA-Public Use
  Company Number: PHHY2010CA19864

PATIENT
  Age: 43 Year
  Sex: Male

DRUGS (1)
  1. SANDOSTATIN LAR [Suspect]
     Indication: ACROMEGALY
     Dosage: 20 mg, Once a month
     Route: 030
     Dates: start: 20070629

REACTIONS (5)
  - Ear discomfort [Unknown]
  - Vertigo [Unknown]
  - Headache [Unknown]
  - Vomiting [Unknown]
  - Balance disorder [Unknown]
